FAERS Safety Report 5473221-7 (Version None)
Quarter: 2007Q4

REPORT INFORMATION
  Report Type: 
  Country: None (occurrence: None)
  Receive Date: 20071001
  Receipt Date: 20070924
  Transmission Date: 20080405
  Serious: Yes (Death)
  Sender: FDA-Public Use
  Company Number: US-SANOFI-SYNTHELABO-A03200705734

PATIENT
  Age: 29 Year
  Sex: Male

DRUGS (1)
  1. AMBIEN [Suspect]
     Dosage: UNK
     Route: 048

REACTIONS (2)
  - FALL [None]
  - SOMNAMBULISM [None]
